FAERS Safety Report 20332500 (Version 1)
Quarter: 2022Q1

REPORT INFORMATION
  Report Type: Spontaneous
  Country: US (occurrence: None)
  Receive Date: 20220113
  Receipt Date: 20220113
  Transmission Date: 20220424
  Serious: No
  Sender: FDA-Public Use
  Company Number: 2021A882876

PATIENT
  Sex: Female
  Weight: 98.4 kg

DRUGS (1)
  1. BYDUREON BCISE [Suspect]
     Active Substance: EXENATIDE
     Indication: Type 2 diabetes mellitus
     Route: 058
     Dates: start: 202110

REACTIONS (4)
  - Injection site mass [Unknown]
  - Weight increased [Unknown]
  - Injection site pain [Unknown]
  - Weight loss poor [Unknown]
